FAERS Safety Report 7591506-5 (Version None)
Quarter: 2011Q3

REPORT INFORMATION
  Report Type: 
  Country: None (occurrence: None)
  Receive Date: 20110701
  Receipt Date: 20110701
  Transmission Date: 20111222
  Serious: Yes (Hospitalization)
  Sender: FDA-Public Use
  Company Number: None

PATIENT
  Sex: Female
  Weight: 75 kg

DRUGS (1)
  1. CISPLATIN [Suspect]
     Dosage: 100 MG

REACTIONS (9)
  - DECREASED APPETITE [None]
  - NAUSEA [None]
  - INCONTINENCE [None]
  - ASTHENIA [None]
  - FATIGUE [None]
  - VOMITING [None]
  - DIARRHOEA [None]
  - WEIGHT DECREASED [None]
  - ACTIVITIES OF DAILY LIVING IMPAIRED [None]
